FAERS Safety Report 9910029 (Version 1)
Quarter: 2014Q1

REPORT INFORMATION
  Report Type: Spontaneous
  Country: US (occurrence: None)
  Receive Date: 20140218
  Receipt Date: 20140218
  Transmission Date: 20141002
  Serious: Yes (Other)
  Sender: FDA-Public Use
  Company Number: None

PATIENT
  Age: 35 Year
  Sex: Female
  Weight: 63.5 kg

DRUGS (1)
  1. ALLEGRA ALLERGY [Suspect]
     Indication: SEASONAL ALLERGY
     Dates: start: 20140121, end: 20140213

REACTIONS (6)
  - Nervousness [None]
  - Heart rate increased [None]
  - Blood pressure increased [None]
  - Asthenia [None]
  - Anxiety [None]
  - Product packaging issue [None]
